FAERS Safety Report 13435985 (Version 1)
Quarter: 2017Q2

REPORT INFORMATION
  Report Type: Spontaneous
  Country: US (occurrence: US)
  Receive Date: 20170412
  Receipt Date: 20170412
  Transmission Date: 20170830
  Serious: No
  Sender: FDA-Public Use
  Company Number: None

PATIENT
  Age: 48 Year
  Sex: Male

DRUGS (1)
  1. TRUVADA [Suspect]
     Active Substance: EMTRICITABINE\TENOFOVIR DISOPROXIL FUMARATE
     Indication: PROPHYLAXIS
     Route: 048

REACTIONS (6)
  - Alcohol use [None]
  - Headache [None]
  - Alcohol poisoning [None]
  - Vomiting [None]
  - Hangover [None]
  - Nausea [None]

NARRATIVE: CASE EVENT DATE: 20170411
